FAERS Safety Report 4267228-5 (Version None)
Quarter: 2004Q1

REPORT INFORMATION
  Report Type: 
  Country: None (occurrence: None)
  Receive Date: 20040108
  Receipt Date: 20040108
  Transmission Date: 20041129
  Serious: Yes (Hospitalization)
  Sender: FDA-Public Use
  Company Number: None

PATIENT
  Age: 59 Year
  Sex: Female
  Weight: 87.5442 kg

DRUGS (10)
  1. CISPLATIN [Suspect]
     Indication: LUNG NEOPLASM MALIGNANT
     Dosage: 150 MG
     Dates: start: 20031029
  2. CISPLATIN [Suspect]
     Indication: LUNG NEOPLASM MALIGNANT
     Dosage: 150 MG
     Dates: start: 20031124
  3. GEMZAR [Suspect]
     Indication: LUNG NEOPLASM MALIGNANT
     Dosage: 1800 MG
     Dates: start: 20031029
  4. GEMZAR [Suspect]
     Indication: LUNG NEOPLASM MALIGNANT
     Dosage: 1800 MG
     Dates: start: 20031105
  5. GEMZAR [Suspect]
     Indication: LUNG NEOPLASM MALIGNANT
     Dosage: 1800 MG
     Dates: start: 20031124
  6. GEMZAR [Suspect]
     Indication: LUNG NEOPLASM MALIGNANT
     Dosage: 1800 MG
     Dates: start: 20031203
  7. ZOFRAN [Concomitant]
  8. MEGACE [Concomitant]
  9. ATIVAN [Concomitant]
  10. PAXIL [Concomitant]

REACTIONS (1)
  - ARTERIAL THROMBOSIS LIMB [None]
